FAERS Safety Report 11575357 (Version 3)
Quarter: 2016Q1

REPORT INFORMATION
  Report Type: Report from Study
  Country: US (occurrence: US)
  Receive Date: 20150930
  Receipt Date: 20160119
  Transmission Date: 20160525
  Serious: Yes (Other)
  Sender: FDA-Public Use
  Company Number: US-BAYER-2015-277912

PATIENT
  Age: 64 Year
  Sex: Male

DRUGS (5)
  1. STIVARGA [Suspect]
     Active Substance: REGORAFENIB
     Indication: RECTOSIGMOID CANCER
     Dosage: DAILY DOSE 120 MG (21 DAYS AND 7 DAYS OFF)
     Route: 048
  2. ENSURE [MINERALS NOS,VITAMINS NOS] [Concomitant]
     Indication: NUTRITIONAL SUPPLEMENTATION
  3. STIVARGA [Suspect]
     Active Substance: REGORAFENIB
     Indication: RECTOSIGMOID CANCER
     Dosage: DAILY DOSE 120 MG
     Route: 048
     Dates: start: 20150519, end: 20150716
  4. CANNABIS [Concomitant]
     Active Substance: CANNABIS SATIVA SUBSP. INDICA TOP
     Indication: PROPHYLAXIS
  5. CANNABIS [Concomitant]
     Active Substance: CANNABIS SATIVA SUBSP. INDICA TOP
     Indication: NAUSEA

REACTIONS (16)
  - Neuralgia [Not Recovered/Not Resolved]
  - Pain in extremity [Recovered/Resolved]
  - Oesophageal spasm [None]
  - Restlessness [None]
  - Pain in extremity [Recovering/Resolving]
  - Chest pain [Recovered/Resolved]
  - Dizziness [Not Recovered/Not Resolved]
  - Decreased appetite [Not Recovered/Not Resolved]
  - Dysphonia [Recovered/Resolved]
  - Fatigue [Not Recovered/Not Resolved]
  - Dysphagia [None]
  - Insomnia [Not Recovered/Not Resolved]
  - Weight decreased [Not Recovered/Not Resolved]
  - Dysphagia [Recovered/Resolved]
  - Blood test abnormal [Not Recovered/Not Resolved]
  - Drug dose omission [None]

NARRATIVE: CASE EVENT DATE: 20150520
